FAERS Safety Report 22055401 (Version 2)
Quarter: 2023Q2

REPORT INFORMATION
  Report Type: Spontaneous
  Country: US (occurrence: US)
  Receive Date: 20230302
  Receipt Date: 20230511
  Transmission Date: 20230721
  Serious: Yes (Other)
  Sender: FDA-Public Use
  Company Number: US-PFIZER INC-202300085932

PATIENT

DRUGS (1)
  1. INDOMETHACIN [Suspect]
     Active Substance: INDOMETHACIN
     Indication: Pain in jaw
     Dosage: UNK

REACTIONS (5)
  - Perforated ulcer [Unknown]
  - Hypersensitivity [Unknown]
  - Dyspepsia [Unknown]
  - Off label use [Unknown]
  - Off label use [Unknown]
